FAERS Safety Report 21974400 (Version 3)
Quarter: 2023Q1

REPORT INFORMATION
  Report Type: Spontaneous
  Country: US (occurrence: US)
  Receive Date: 20230209
  Receipt Date: 20230321
  Transmission Date: 20230418
  Serious: No
  Sender: FDA-Public Use
  Company Number: US-009507513-2302USA002696

PATIENT
  Age: 77 Year
  Sex: Female
  Weight: 68.118 kg

DRUGS (5)
  1. ZINPLAVA [Suspect]
     Active Substance: BEZLOTOXUMAB
     Indication: Clostridium difficile infection
     Dosage: 10 MG/KG/SINGLE DOSE
     Route: 042
     Dates: start: 20230204
  2. ADALIMUMAB [Concomitant]
     Active Substance: ADALIMUMAB
  3. METHOTREXATE [Concomitant]
     Active Substance: METHOTREXATE
     Dosage: UNK, ONCE
  4. DIFICID [Concomitant]
     Active Substance: FIDAXOMICIN
     Dosage: 1 DOSAGE FORM, Q12H
     Route: 048
     Dates: start: 20230127
  5. GABAPENTIN [Concomitant]
     Active Substance: GABAPENTIN
     Dosage: UNK
     Route: 048
     Dates: start: 20230202

REACTIONS (3)
  - Infusion site extravasation [Recovered/Resolved]
  - Wrong technique in product usage process [Unknown]
  - Incorrect route of product administration [Unknown]

NARRATIVE: CASE EVENT DATE: 20230204
